FAERS Safety Report 10355591 (Version 6)
Quarter: 2014Q4

REPORT INFORMATION
  Report Type: Spontaneous
  Country: US (occurrence: None)
  Receive Date: 20140728
  Receipt Date: 20141203
  Transmission Date: 20150528
  Serious: Yes (Hospitalization)
  Sender: FDA-Public Use
  Company Number: UNT-2014-004268

PATIENT
  Age: 41 Year
  Sex: Female
  Weight: 108.4 kg

DRUGS (2)
  1. REMODULIN [Suspect]
     Active Substance: TREPROSTINIL
     Indication: PULMONARY ARTERIAL HYPERTENSION
     Route: 058
     Dates: start: 20140411
  2. LAMICTAL [Suspect]
     Active Substance: LAMOTRIGINE
     Indication: PRODUCT USED FOR UNKNOWN INDICATION

REACTIONS (10)
  - Dermatitis allergic [None]
  - Chest pain [None]
  - Infusion site infection [None]
  - Oedema [None]
  - Swelling [None]
  - Unevaluable event [None]
  - Infusion site pain [None]
  - Non-cardiac chest pain [None]
  - Urinary incontinence [None]
  - Drug hypersensitivity [None]

NARRATIVE: CASE EVENT DATE: 2014
